FAERS Safety Report 6521984-1 (Version None)
Quarter: 2009Q4

REPORT INFORMATION
  Report Type: 
  Country: None (occurrence: None)
  Receive Date: 20091230
  Receipt Date: 20091215
  Transmission Date: 20100525
  Serious: Yes (Other)
  Sender: FDA-Public Use
  Company Number: US-PFIZER INC-2009311309

PATIENT
  Sex: Female
  Weight: 41.3 kg

DRUGS (1)
  1. SUTENT [Suspect]
     Indication: RENAL CELL CARCINOMA
     Dosage: 50 MG, 1X/DAY
     Dates: start: 20091030

REACTIONS (7)
  - DIARRHOEA [None]
  - ERYTHEMA [None]
  - MOUTH HAEMORRHAGE [None]
  - NAUSEA [None]
  - RED BLOOD CELL COUNT DECREASED [None]
  - URTICARIA [None]
  - VOMITING [None]
